FAERS Safety Report 9936311 (Version 1)
Quarter: 2014Q1

REPORT INFORMATION
  Report Type: Spontaneous
  Country: US (occurrence: US)
  Receive Date: 20140228
  Receipt Date: 20140228
  Transmission Date: 20141002
  Serious: No
  Sender: FDA-Public Use
  Company Number: US-AMGEN-USASP2014002630

PATIENT
  Age: 56 Year
  Sex: Female

DRUGS (2)
  1. ENBREL [Suspect]
     Indication: PSORIATIC ARTHROPATHY
     Dosage: 50 MG, 2 TIMES/WK
     Route: 065
     Dates: start: 20130701
  2. ENBREL [Suspect]
     Indication: PUSTULAR PSORIASIS

REACTIONS (7)
  - Blister [Not Recovered/Not Resolved]
  - Skin injury [Not Recovered/Not Resolved]
  - Pain of skin [Not Recovered/Not Resolved]
  - Skin ulcer [Not Recovered/Not Resolved]
  - Arthralgia [Recovered/Resolved]
  - Skin burning sensation [Not Recovered/Not Resolved]
  - Paraesthesia [Recovered/Resolved]
